FAERS Safety Report 8490658-2 (Version None)
Quarter: 2012Q3

REPORT INFORMATION
  Report Type: 
  Country: None (occurrence: None)
  Receive Date: 20120705
  Receipt Date: 20120622
  Transmission Date: 20120928
  Serious: Yes (Other)
  Sender: FDA-Public Use
  Company Number: CHPA2012US009703

PATIENT
  Sex: Female

DRUGS (1)
  1. ACETAMINOPHEN, DIPHENHYDRAMINE CITRATE [Suspect]
     Dosage: 2 DF, QD
     Route: 048
     Dates: start: 19820101

REACTIONS (5)
  - BLOOD COUNT ABNORMAL [None]
  - INCORRECT DRUG ADMINISTRATION DURATION [None]
  - GASTRIC HAEMORRHAGE [None]
  - ANAEMIA [None]
  - GASTRIC DISORDER [None]
